FAERS Safety Report 4642840-X (Version None)
Quarter: 2005Q2

REPORT INFORMATION
  Report Type: 
  Country: None (occurrence: None)
  Receive Date: 20050421
  Receipt Date: 20050121
  Transmission Date: 20051028
  Serious: Yes (Hospitalization)
  Sender: FDA-Public Use
  Company Number: 2003182090AU

PATIENT
  Age: 78 Year
  Sex: Male

DRUGS (9)
  1. BLINDED THERAPY [Suspect]
     Indication: NEOPLASM PROPHYLAXIS
     Dosage: ORAL
     Route: 048
     Dates: start: 20010426, end: 20031013
  2. DIPYRIDAMOLE [Concomitant]
  3. ACETYL SALICYLIC ACID USP BAT [Concomitant]
  4. SIMVASTATIN [Concomitant]
  5. ISOSORBIDE MONONITRATE [Concomitant]
  6. FUROSEMIDE [Concomitant]
  7. SALBUTAMOL (SALBUTAMOL) [Concomitant]
  8. ACETAMINOPHEN [Concomitant]
  9. SINEMET [Concomitant]

REACTIONS (11)
  - CHRONIC OBSTRUCTIVE PULMONARY DISEASE [None]
  - COLLAPSE OF LUNG [None]
  - DISEASE RECURRENCE [None]
  - HEPATIC FAILURE [None]
  - LIVER DISORDER [None]
  - LUNG CONSOLIDATION [None]
  - MALIGNANT PLEURAL EFFUSION [None]
  - NEPHRECTOMY [None]
  - RETROPERITONEAL CANCER [None]
  - SARCOMA [None]
  - URINARY TRACT INFECTION [None]
